FAERS Safety Report 24529895 (Version 1)
Quarter: 2024Q4

REPORT INFORMATION
  Report Type: Spontaneous
  Country: NO (occurrence: NO)
  Receive Date: 20241021
  Receipt Date: 20241021
  Transmission Date: 20250115
  Serious: Yes (Hospitalization)
  Sender: HILL DERMACEUTICALS, INC.
  Company Number: NO-Hill Dermaceuticals, Inc.-2163468

PATIENT
  Age: 76 Year
  Sex: Male

DRUGS (1)
  1. TOLAK [Suspect]
     Active Substance: FLUOROURACIL
     Indication: Actinic keratosis
     Dates: start: 20240902, end: 20240924

REACTIONS (5)
  - Skin reaction [Recovered/Resolved]
  - Pain of skin [Recovered/Resolved]
  - Product administered at inappropriate site [Unknown]
  - Pruritus [Recovered/Resolved]
  - Scab [Recovered/Resolved]

NARRATIVE: CASE EVENT DATE: 20240902
